FAERS Safety Report 16117052 (Version 1)
Quarter: 2019Q2

REPORT INFORMATION
  Report Type: Spontaneous
  Country: US (occurrence: US)
  Receive Date: 20190325
  Receipt Date: 20190325
  Transmission Date: 20190711
  Serious: Yes (Other)
  Sender: FDA-Public Use
  Company Number: None

PATIENT
  Sex: Female

DRUGS (21)
  1. AMLODIPINE [Concomitant]
     Active Substance: AMLODIPINE BESYLATE
  2. ARICEPT [Concomitant]
     Active Substance: DONEPEZIL HYDROCHLORIDE
  3. POTASSIUM CHLLRIDE [Concomitant]
  4. LATUDA [Suspect]
     Active Substance: LURASIDONE HYDROCHLORIDE
     Indication: PRODUCT USED FOR UNKNOWN INDICATION
  5. LITHIUM. [Concomitant]
     Active Substance: LITHIUM
  6. ASPIRIN 325 [Concomitant]
     Active Substance: ASPIRIN
  7. ATORVASTATIN [Concomitant]
     Active Substance: ATORVASTATIN
  8. BUMETANIDE (STOPPED) [Concomitant]
  9. FLUVO [Concomitant]
  10. LISINOPRIL (STOPPED) [Concomitant]
  11. TRAZODONE [Concomitant]
     Active Substance: TRAZODONE HYDROCHLORIDE
  12. CLONAZEPAM. [Concomitant]
     Active Substance: CLONAZEPAM
  13. CARE LAX [Concomitant]
  14. ALBUTEROL. [Concomitant]
     Active Substance: ALBUTEROL
  15. LEVOTHYROXINE. [Concomitant]
     Active Substance: LEVOTHYROXINE
  16. TYLENOL [Concomitant]
     Active Substance: ACETAMINOPHEN
  17. FOLIC ACID. [Concomitant]
     Active Substance: FOLIC ACID
  18. CALCIUM [Concomitant]
     Active Substance: CALCIUM
  19. C COMPLEX [Concomitant]
  20. CARBAMAZEPINE. [Concomitant]
     Active Substance: CARBAMAZEPINE
  21. MECLIZINE [Concomitant]
     Active Substance: MECLIZINE HYDROCHLORIDE

REACTIONS (2)
  - Dysgraphia [None]
  - Speech disorder [None]
